FAERS Safety Report 8157548-6 (Version None)
Quarter: 2012Q1

REPORT INFORMATION
  Report Type: 
  Country: None (occurrence: None)
  Receive Date: 20120222
  Receipt Date: 20120113
  Transmission Date: 20120608
  Serious: No
  Sender: FDA-Public Use
  Company Number: US-ASTRAZENECA-2012SE03095

PATIENT
  Age: 48 Year
  Sex: Female

DRUGS (13)
  1. DEXILANT [Concomitant]
     Indication: GASTROOESOPHAGEAL REFLUX DISEASE
  2. VISTARIL [Concomitant]
     Indication: PRURITUS
  3. ACYCLOVIR [Concomitant]
  4. ESTRACE [Concomitant]
  5. NEXIUM [Suspect]
     Route: 048
  6. ZANTAC [Concomitant]
  7. RANITIDINE [Concomitant]
  8. TENORMIN [Suspect]
     Route: 048
  9. FLEXERIL [Concomitant]
  10. LORTAB [Concomitant]
     Indication: PAIN
  11. REGLAN [Concomitant]
     Indication: ERUCTATION
  12. ROBAXIN [Concomitant]
     Indication: MUSCLE SPASMS
  13. PROVERA [Concomitant]

REACTIONS (3)
  - GASTROOESOPHAGEAL REFLUX DISEASE [None]
  - ERUCTATION [None]
  - PAIN [None]
